FAERS Safety Report 15101806 (Version 1)
Quarter: 2018Q3

REPORT INFORMATION
  Report Type: Report from Study
  Country: SE (occurrence: SE)
  Receive Date: 20180703
  Receipt Date: 20180703
  Transmission Date: 20181010
  Serious: Yes (Other)
  Sender: FDA-Public Use
  Company Number: SE-TEVA-2018-SE-920437

PATIENT
  Sex: Female

DRUGS (5)
  1. EMTRICITABIN [Suspect]
     Active Substance: EMTRICITABINE
     Indication: HIV INFECTION
     Route: 065
  2. DOLUTEGRAVIR [Suspect]
     Active Substance: DOLUTEGRAVIR
     Indication: HIV INFECTION
     Dosage: 50 MILLIGRAM DAILY;
     Route: 065
  3. RITONAVIR. [Suspect]
     Active Substance: RITONAVIR
     Indication: HIV INFECTION
     Route: 065
  4. DARUNAVIR [Suspect]
     Active Substance: DARUNAVIR
     Indication: HIV INFECTION
     Route: 065
  5. TENOFOVIR DISOPROXIL FUMARATE. [Suspect]
     Active Substance: TENOFOVIR DISOPROXIL FUMARATE
     Indication: HIV INFECTION
     Route: 065

REACTIONS (4)
  - Pre-eclampsia [Unknown]
  - Maternal exposure during pregnancy [Unknown]
  - Premature labour [Unknown]
  - Therapy change [Unknown]
